FAERS Safety Report 8308733 (Version 2)
Quarter: 2012Q4

REPORT INFORMATION
  Report Type: Report from Study
  Country: US (occurrence: US)
  Receive Date: 20111222
  Receipt Date: 20121105
  Transmission Date: 20130627
  Serious: Yes (Hospitalization, Other)
  Sender: FDA-Public Use
  Company Number: US-ABBOTT-11P-163-0882672-00

PATIENT
  Age: 16 None
  Sex: Female
  Weight: 60.38 kg

DRUGS (17)
  1. HUMIRA 40 MG/0.8 ML PEN [Suspect]
     Indication: CROHN^S DISEASE
     Route: 058
     Dates: start: 2009, end: 2011
  2. HUMIRA 40 MG/0.8 ML PEN [Suspect]
     Indication: IRRITABLE BOWEL SYNDROME
     Route: 058
     Dates: start: 2011
  3. UNSPECIFIED INGREDIENT [Suspect]
     Indication: COMPUTERISED TOMOGRAM
     Dates: start: 20111214, end: 20111214
  4. PENTASA [Concomitant]
     Indication: CROHN^S DISEASE
     Route: 048
  5. FERROUS SULFATE [Concomitant]
     Indication: CROHN^S DISEASE
  6. 6-MP [Concomitant]
     Indication: CROHN^S DISEASE
     Dates: start: 201110
  7. 6-MP [Concomitant]
  8. 6-MP [Concomitant]
  9. 6-MP [Concomitant]
  10. ZINC SULFATE [Concomitant]
     Indication: VITAMIN SUPPLEMENTATION
     Dates: start: 201111
  11. VITAMIN D [Concomitant]
     Indication: VITAMIN SUPPLEMENTATION
     Dates: start: 201111
  12. ZINC [Concomitant]
     Indication: PRODUCT USED FOR UNKNOWN INDICATION
  13. OMEPRAZOLE [Concomitant]
     Indication: PRODUCT USED FOR UNKNOWN INDICATION
  14. METHOTREXATE [Concomitant]
     Indication: PRODUCT USED FOR UNKNOWN INDICATION
  15. IRON [Concomitant]
     Indication: PRODUCT USED FOR UNKNOWN INDICATION
  16. CALCIUM [Concomitant]
     Indication: PRODUCT USED FOR UNKNOWN INDICATION
  17. HYOSCYAMINE [Concomitant]
     Indication: PRODUCT USED FOR UNKNOWN INDICATION

REACTIONS (18)
  - Haematochezia [Not Recovered/Not Resolved]
  - Crohn^s disease [Not Recovered/Not Resolved]
  - Abdominal pain [Not Recovered/Not Resolved]
  - Myalgia [Not Recovered/Not Resolved]
  - Fatigue [Not Recovered/Not Resolved]
  - Wound [Not Recovered/Not Resolved]
  - Weight decreased [Not Recovered/Not Resolved]
  - Headache [Not Recovered/Not Resolved]
  - Pyrexia [Recovered/Resolved]
  - Rash [Recovered/Resolved]
  - Drug ineffective [Not Recovered/Not Resolved]
  - Drug level below therapeutic [Unknown]
  - Vomiting [Recovered/Resolved]
  - Epistaxis [Not Recovered/Not Resolved]
  - Hot flush [Not Recovered/Not Resolved]
  - Tonsillitis [Not Recovered/Not Resolved]
  - Coagulation test abnormal [Unknown]
  - Insomnia [Not Recovered/Not Resolved]
